FAERS Safety Report 10576030 (Version 1)
Quarter: 2014Q4

REPORT INFORMATION
  Report Type: Spontaneous
  Country: US (occurrence: None)
  Receive Date: 20141110
  Receipt Date: 20141110
  Transmission Date: 20150529
  Serious: No
  Sender: FDA-Public Use
  Company Number: None

PATIENT
  Age: 63 Year
  Sex: Female
  Weight: 74.84 kg

DRUGS (1)
  1. CEFPROZIL. [Suspect]
     Active Substance: CEFPROZIL
     Indication: SINUSITIS
     Dosage: 1 TABLET
     Route: 048
     Dates: start: 20141028, end: 20141105

REACTIONS (2)
  - Urticaria [None]
  - Lip swelling [None]

NARRATIVE: CASE EVENT DATE: 20141105
